FAERS Safety Report 6181817-2 (Version None)
Quarter: 2009Q2

REPORT INFORMATION
  Report Type: 
  Country: None (occurrence: None)
  Receive Date: 20090506
  Receipt Date: 20090427
  Transmission Date: 20091009
  Serious: Yes (Hospitalization, Other)
  Sender: FDA-Public Use
  Company Number: PHHY2009GT15910

PATIENT
  Age: 92 Year
  Sex: Male

DRUGS (3)
  1. EXELON [Suspect]
     Indication: DEMENTIA ALZHEIMER'S TYPE
     Dosage: 1.5 MG, BID
     Route: 048
  2. APROVEL [Concomitant]
     Dosage: 150 MG/DAY
     Route: 048
  3. AMARYL [Concomitant]
     Dosage: 0.5 DF/DAY
     Route: 048

REACTIONS (5)
  - BLOOD GLUCOSE INCREASED [None]
  - HYPOXIA [None]
  - LEUKOCYTOSIS [None]
  - PNEUMONIA [None]
  - RESPIRATORY ALKALOSIS [None]
